FAERS Safety Report 6423397-X (Version None)
Quarter: 2009Q4

REPORT INFORMATION
  Report Type: 
  Country: None (occurrence: None)
  Receive Date: 20091102
  Receipt Date: 20091029
  Transmission Date: 20100525
  Serious: Yes (Other)
  Sender: FDA-Public Use
  Company Number: A0812773A

PATIENT
  Age: 79 Year
  Sex: Female

DRUGS (9)
  1. RYTHMOL SR [Suspect]
     Dosage: 225MG TWICE PER DAY
     Route: 048
     Dates: start: 20090801
  2. UNKNOWN [Concomitant]
     Indication: ILL-DEFINED DISORDER
  3. LIPITOR [Concomitant]
  4. UNKNOWN [Concomitant]
  5. PAXIL [Concomitant]
     Indication: SLEEP DISORDER
  6. CARVEDILOL [Concomitant]
  7. COUMADIN [Concomitant]
  8. PREVACID [Concomitant]
  9. MULTI-VITAMIN [Concomitant]

REACTIONS (13)
  - CHOKING [None]
  - CONSTIPATION [None]
  - DIZZINESS [None]
  - DYSGEUSIA [None]
  - DYSKINESIA [None]
  - DYSPEPSIA [None]
  - DYSPHAGIA [None]
  - FEELING ABNORMAL [None]
  - INCREASED TENDENCY TO BRUISE [None]
  - LOCAL SWELLING [None]
  - NERVOUSNESS [None]
  - SOMNOLENCE [None]
  - TREMOR [None]
